FAERS Safety Report 18218821 (Version 1)
Quarter: 2020Q3

REPORT INFORMATION
  Report Type: Spontaneous
  Country: US (occurrence: US)
  Receive Date: 20200831
  Receipt Date: 20200831
  Transmission Date: 20201103
  Serious: Yes (Hospitalization)
  Sender: FDA-Public Use
  Company Number: None

PATIENT
  Age: 71 Year
  Sex: Male
  Weight: 72.12 kg

DRUGS (2)
  1. FUROSEMIDE (FUROSEMIDE 40MG TAB) [Suspect]
     Active Substance: FUROSEMIDE
     Indication: CARDIAC FAILURE CONGESTIVE
     Route: 048
     Dates: start: 20200109
  2. ISOSORBIDE MONONITRATE (ISOSORBIDE MONONITRATE 30MG TAB, SA) [Suspect]
     Active Substance: ISOSORBIDE MONONITRATE
     Indication: ANGINA PECTORIS
     Route: 048
     Dates: start: 20200111, end: 20200213

REACTIONS (8)
  - Nausea [None]
  - Vomiting [None]
  - Orthostatic hypotension [None]
  - Dizziness [None]
  - Decreased appetite [None]
  - Dehydration [None]
  - Acute coronary syndrome [None]
  - Sinus bradycardia [None]

NARRATIVE: CASE EVENT DATE: 20200211
